FAERS Safety Report 6658287-0 (Version None)
Quarter: 2010Q1

REPORT INFORMATION
  Report Type: 
  Country: None (occurrence: None)
  Receive Date: 20100330
  Receipt Date: 20100225
  Transmission Date: 20100710
  Serious: No
  Sender: FDA-Public Use
  Company Number: US-BIOGENIDEC-2010BI006864

PATIENT
  Age: 30 Year
  Sex: Female

DRUGS (2)
  1. TYSABRI [Suspect]
     Indication: MULTIPLE SCLEROSIS
     Route: 042
     Dates: start: 20080807, end: 20080912
  2. TYSABRI [Suspect]
     Route: 042
     Dates: start: 20091119

REACTIONS (5)
  - DIZZINESS [None]
  - DYSARTHRIA [None]
  - FUMBLING [None]
  - HEADACHE [None]
  - MULTIPLE SCLEROSIS RELAPSE [None]
